FAERS Safety Report 9163710 (Version 2)
Quarter: 2013Q2

REPORT INFORMATION
  Report Type: Spontaneous
  Country: FR (occurrence: FR)
  Receive Date: 20130314
  Receipt Date: 20130604
  Transmission Date: 20140414
  Serious: Yes (Hospitalization)
  Sender: FDA-Public Use
  Company Number: FR-PFIZER INC-2013084547

PATIENT
  Age: 41 Year
  Sex: Male

DRUGS (5)
  1. EUPANTOL [Suspect]
     Dosage: 40 MG, UNK
     Route: 048
     Dates: start: 20130131, end: 20130208
  2. ROCEPHINE [Suspect]
     Dosage: 1 G DAILY
     Route: 042
     Dates: start: 20130131, end: 20130205
  3. ROVAMYCINE [Suspect]
     Dosage: STRENGTH: 1.5 MIU, DAILY DOSE: 4.5 MIU
     Route: 042
     Dates: start: 20130131, end: 20130203
  4. ROVAMYCINE [Suspect]
     Dosage: STRENGTH: 3 MIU, DAILY DOSE: 9 MIU
     Route: 048
     Dates: start: 20130204, end: 20130206
  5. LOVENOX [Suspect]
     Dosage: UNK
     Route: 058
     Dates: start: 20130204, end: 20130207

REACTIONS (1)
  - Neutropenia [Recovered/Resolved]
